FAERS Safety Report 23326181 (Version 1)
Quarter: 2023Q4

REPORT INFORMATION
  Report Type: Spontaneous
  Country: None (occurrence: US)
  Receive Date: 20231221
  Receipt Date: 20231221
  Transmission Date: 20240109
  Serious: Yes (Other)
  Sender: FDA-Public Use
  Company Number: US-B.Braun Medical Inc.-2149637

PATIENT
  Age: 39 Year
  Sex: Female

DRUGS (4)
  1. CEFOXITIN AND DEXTROSE [Suspect]
     Active Substance: CEFOXITIN SODIUM
     Indication: Mycobacterium abscessus infection
  2. CEFOXITIN AND DEXTROSE [Suspect]
     Active Substance: CEFOXITIN SODIUM
     Indication: Arthritis bacterial
  3. LINEZOLID [Suspect]
     Active Substance: LINEZOLID
  4. AMIKACIN [Suspect]
     Active Substance: AMIKACIN

REACTIONS (6)
  - Leukopenia [None]
  - Neutropenia [None]
  - Eosinophilia [None]
  - Platelet count decreased [None]
  - Condition aggravated [None]
  - Off label use [None]
